FAERS Safety Report 5390529-4 (Version None)
Quarter: 2007Q3

REPORT INFORMATION
  Report Type: 
  Country: None (occurrence: None)
  Receive Date: 20070718
  Receipt Date: 20060619
  Transmission Date: 20080115
  Serious: No
  Sender: FDA-Public Use
  Company Number: US-KINGPHARMUSA00001-K200600786

PATIENT

DRUGS (4)
  1. LEVOXYL [Suspect]
     Indication: HYPOTHYROIDISM
     Dosage: 100 MCG, QD
     Route: 048
     Dates: start: 19950101
  2. ASPIRIN [Concomitant]
     Indication: HEART DISEASE CONGENITAL
     Dosage: 81 MG, QAM
     Route: 048
  3. FOLIC ACID [Concomitant]
     Indication: MEDICAL DIET
     Dosage: UNK, QAM
     Route: 048
  4. QUESTRAN [Concomitant]
     Indication: BLOOD CHOLESTEROL INCREASED
     Dosage: UNK, QPM
     Route: 048

REACTIONS (2)
  - DIARRHOEA [None]
  - FOOD INTOLERANCE [None]
